FAERS Safety Report 8850931 (Version 3)
Quarter: 2013Q1

REPORT INFORMATION
  Report Type: Spontaneous
  Country: US (occurrence: US)
  Receive Date: 20121019
  Receipt Date: 20130226
  Transmission Date: 20140127
  Serious: No
  Sender: FDA-Public Use
  Company Number: US-PFIZER INC-2012257901

PATIENT
  Age: 65 Year
  Sex: Male

DRUGS (1)
  1. SUTENT [Suspect]
     Indication: RENAL CANCER
     Dosage: 50 MG, 1X/DAY, FOR 28 DAYS THEN 14 DAYS OFF
     Route: 048
     Dates: start: 20120213, end: 20120531

REACTIONS (4)
  - Disease progression [Unknown]
  - Renal cancer [Unknown]
  - Diarrhoea [Unknown]
  - Fatigue [Unknown]
